FAERS Safety Report 7338033-8 (Version None)
Quarter: 2011Q1

REPORT INFORMATION
  Report Type: 
  Country: None (occurrence: None)
  Receive Date: 20110308
  Receipt Date: 20110222
  Transmission Date: 20110831
  Serious: Yes (Other)
  Sender: FDA-Public Use
  Company Number: PHHY2010BR83433

PATIENT
  Sex: Male

DRUGS (1)
  1. DIOVAN HCT [Suspect]
     Indication: HYPERTENSION
     Dosage: 160/12.5 MG, QD
     Route: 048
     Dates: start: 20050101

REACTIONS (5)
  - BLOOD PRESSURE INCREASED [None]
  - DYSGEUSIA [None]
  - EYE DISORDER [None]
  - EYE OEDEMA [None]
  - DRUG INEFFECTIVE [None]
